FAERS Safety Report 15546236 (Version 1)
Quarter: 2018Q4

REPORT INFORMATION
  Report Type: Spontaneous
  Country: US (occurrence: US)
  Receive Date: 20181023
  Receipt Date: 20181023
  Transmission Date: 20190205
  Serious: Yes (Disabling)
  Sender: FDA-Public Use
  Company Number: None

PATIENT
  Age: 59 Year
  Sex: Female
  Weight: 75.15 kg

DRUGS (8)
  1. DICLOFENAC [Concomitant]
     Active Substance: DICLOFENAC
  2. DOCUSATE SODIUM (STOOL SOFTENER) [Concomitant]
  3. CANDESARTIN CELEXETIL [Concomitant]
  4. ORAL PROGESTERONE [Concomitant]
  5. ACETAMINOPHEN. [Concomitant]
     Active Substance: ACETAMINOPHEN
  6. VITAMIN D [Concomitant]
     Active Substance: CHOLECALCIFEROL
  7. AIMOVIG [Suspect]
     Active Substance: ERENUMAB-AOOE
     Indication: MIGRAINE PROPHYLAXIS
     Dosage: ?          QUANTITY:2 INJECTION(S);OTHER FREQUENCY:ONCE MONTHLY;?
     Route: 058
     Dates: start: 20180627, end: 20180919
  8. TIZANIDINE. [Concomitant]
     Active Substance: TIZANIDINE

REACTIONS (3)
  - Abnormal dreams [None]
  - Therapy cessation [None]
  - Sleep terror [None]

NARRATIVE: CASE EVENT DATE: 20180725
